FAERS Safety Report 5218150-9 (Version None)
Quarter: 2007Q1

REPORT INFORMATION
  Report Type: 
  Country: None (occurrence: None)
  Receive Date: 20061130
  Receipt Date: 20060909
  Transmission Date: 20070707
  Serious: Yes (Hospitalization)
  Sender: FDA-Public Use
  Company Number: US200609003337

PATIENT
  Age: 25 Year
  Sex: Male

DRUGS (4)
  1. ZYPREXA [Suspect]
     Indication: MANIA
     Dosage: 10 MG, UNK, UNK
  2. HALDOL SOLUTAB [Concomitant]
  3. RISPERDAL [Concomitant]
  4. ASACOL [Concomitant]

REACTIONS (1)
  - NEUROLEPTIC MALIGNANT SYNDROME [None]
